FAERS Safety Report 9634352 (Version 8)
Quarter: 2013Q4

REPORT INFORMATION
  Report Type: Spontaneous
  Country: US (occurrence: US)
  Receive Date: 20131021
  Receipt Date: 20131220
  Transmission Date: 20140711
  Serious: Yes (Death, Hospitalization)
  Sender: FDA-Public Use
  Company Number: US-JNJFOC-20131011166

PATIENT
  Age: 76 Year
  Sex: Male

DRUGS (14)
  1. XARELTO [Suspect]
     Indication: CEREBROVASCULAR ACCIDENT PROPHYLAXIS
     Route: 048
     Dates: start: 20130613
  2. XARELTO [Suspect]
     Indication: CEREBROVASCULAR ACCIDENT PROPHYLAXIS
     Route: 048
     Dates: start: 20130620, end: 20130711
  3. XARELTO [Suspect]
     Indication: ATRIAL FIBRILLATION
     Route: 048
     Dates: start: 20130613
  4. XARELTO [Suspect]
     Indication: ATRIAL FIBRILLATION
     Route: 048
     Dates: start: 20130620, end: 20130711
  5. ASA [Suspect]
     Indication: PRODUCT USED FOR UNKNOWN INDICATION
     Route: 048
     Dates: start: 20080104, end: 201307
  6. ALDACTONE [Concomitant]
     Route: 048
     Dates: start: 20130501, end: 201307
  7. ALLOPURINOL [Concomitant]
     Route: 048
     Dates: start: 20130501, end: 201307
  8. ZOCOR [Concomitant]
     Route: 048
     Dates: start: 20130501, end: 201307
  9. LISINOPRIL [Concomitant]
     Route: 048
     Dates: start: 20130622, end: 201307
  10. COREG [Concomitant]
     Dosage: 12.5 MG DECREASED TO 6.25 MG
     Route: 048
     Dates: start: 20130602
  11. COREG [Concomitant]
     Dosage: 12.5 MG DECREASED TO 6.25 MG
     Route: 048
  12. SINEMET CR [Concomitant]
     Route: 048
     Dates: start: 20120120, end: 201307
  13. AMIODARONE [Concomitant]
     Route: 048
     Dates: start: 20130613
  14. AMIODARONE [Concomitant]
     Route: 048
     Dates: end: 201307

REACTIONS (5)
  - Subarachnoid haemorrhage [Fatal]
  - Brain herniation [Fatal]
  - Haemorrhage intracranial [Unknown]
  - Accident [Unknown]
  - Inappropriate schedule of drug administration [Unknown]
